FAERS Safety Report 16122127 (Version 1)
Quarter: 2019Q1

REPORT INFORMATION
  Report Type: Spontaneous
  Country: PR (occurrence: PR)
  Receive Date: 20190327
  Receipt Date: 20190327
  Transmission Date: 20190418
  Serious: No
  Sender: FDA-Public Use
  Company Number: PR-PFIZER INC-2019124382

PATIENT
  Sex: Male
  Weight: 63.5 kg

DRUGS (3)
  1. ATORVASTATIN [Concomitant]
     Active Substance: ATORVASTATIN
     Indication: BLOOD CHOLESTEROL ABNORMAL
     Dosage: 10 MG, 1X/DAY
  2. MEDROL [Suspect]
     Active Substance: METHYLPREDNISOLONE
     Indication: RHEUMATOID ARTHRITIS
     Dosage: 16 MG, UNK
  3. ACTONEL [Concomitant]
     Active Substance: RISEDRONATE SODIUM
     Indication: BONE DISORDER
     Dosage: 150 MG, MONTHLY [150 MG ONCE A MONTH BY MOUTH AT BREAKFAST]
     Route: 048
     Dates: start: 2009

REACTIONS (2)
  - Drug ineffective [Unknown]
  - Osteoporosis [Unknown]
